FAERS Safety Report 10230316 (Version 3)
Quarter: 2014Q2

REPORT INFORMATION
  Report Type: Report from Study
  Country: US (occurrence: US)
  Receive Date: 20140611
  Receipt Date: 20140620
  Transmission Date: 20141212
  Serious: Yes (Hospitalization)
  Sender: FDA-Public Use
  Company Number: US-CELGENEUS-163-21880-12030704

PATIENT
  Age: 77 Year
  Sex: Male
  Weight: 90.9 kg

DRUGS (3)
  1. REVLIMID [Suspect]
     Indication: PLASMA CELL MYELOMA
     Route: 048
     Dates: start: 20110331, end: 201206
  2. MELPHALAN [Suspect]
     Indication: PLASMA CELL MYELOMA
     Dosage: 2 MILLIGRAM
     Route: 048
     Dates: start: 20110331, end: 201206
  3. PREDNISONE [Suspect]
     Indication: PLASMA CELL MYELOMA
     Dosage: 20 MILLIGRAM
     Route: 048
     Dates: start: 20110331, end: 201206

REACTIONS (3)
  - Chest X-ray abnormal [Unknown]
  - Cardiac failure [Unknown]
  - Pneumonia [Unknown]
